FAERS Safety Report 5610504-1 (Version None)
Quarter: 2008Q1

REPORT INFORMATION
  Report Type: 
  Country: None (occurrence: None)
  Receive Date: 20080130
  Receipt Date: 20080130
  Transmission Date: 20080703
  Serious: No
  Sender: FDA-Public Use
  Company Number: None

PATIENT
  Age: 53 Year
  Sex: Male

DRUGS (9)
  1. ALLOPURINOL [Suspect]
  2. LISINOPRIL [Concomitant]
  3. DOXAZOSIN MESYLATE [Concomitant]
  4. POTASSIUM CITRATE [Concomitant]
  5. LEVOFLOXACIN [Concomitant]
  6. ACETAMINOPHEN [Concomitant]
  7. IBUPROFEN [Concomitant]
  8. CEFTRIAXONE [Concomitant]
  9. AZITHROMYCIN [Concomitant]

REACTIONS (1)
  - DRUG RASH WITH EOSINOPHILIA AND SYSTEMIC SYMPTOMS [None]
